FAERS Safety Report 9609181 (Version 1)
Quarter: 2013Q4

REPORT INFORMATION
  Report Type: Spontaneous
  Country: US (occurrence: US)
  Receive Date: 20131009
  Receipt Date: 20131009
  Transmission Date: 20140711
  Serious: No
  Sender: FDA-Public Use
  Company Number: US-PURDUE-USA-2012-0094799

PATIENT
  Sex: Male

DRUGS (4)
  1. BUTRANS [Suspect]
     Indication: BACK PAIN
     Dosage: 20 MCG/HR, UNK
     Route: 062
     Dates: start: 20120816
  2. BUTRANS [Suspect]
     Indication: ARTHRALGIA
  3. OXYCONTIN (NDA 22-272) [Suspect]
     Indication: BACK PAIN
     Dosage: 40 MG, UNK
     Route: 048
     Dates: start: 200412
  4. OXYCONTIN (NDA 22-272) [Suspect]
     Indication: ARTHRALGIA

REACTIONS (1)
  - Withdrawal syndrome [Unknown]
